FAERS Safety Report 12507661 (Version 3)
Quarter: 2016Q3

REPORT INFORMATION
  Report Type: Spontaneous
  Country: JP (occurrence: JP)
  Receive Date: 20160629
  Receipt Date: 20160906
  Transmission Date: 20161109
  Serious: Yes (Disabling)
  Sender: FDA-Public Use
  Company Number: JP-ROCHE-1785123

PATIENT
  Age: 74 Year
  Sex: Male

DRUGS (2)
  1. XELODA [Suspect]
     Active Substance: CAPECITABINE
     Indication: RECTAL CANCER
     Dosage: DOSAGE IS UNCERTAIN. ?FIVE COURSES
     Route: 048
     Dates: start: 201510, end: 201601
  2. OXALIPLATIN. [Concomitant]
     Active Substance: OXALIPLATIN
     Indication: RECTAL CANCER
     Dosage: DOSAGE IS UNCERTAIN. ?FIVE COURSES
     Route: 041

REACTIONS (1)
  - Spinal ligament ossification [Recovering/Resolving]

NARRATIVE: CASE EVENT DATE: 201512
